FAERS Safety Report 17368113 (Version 1)
Quarter: 2020Q1

REPORT INFORMATION
  Report Type: Report from Study
  Country: IT (occurrence: IT)
  Receive Date: 20200204
  Receipt Date: 20200204
  Transmission Date: 20200409
  Serious: Yes (Other)
  Sender: FDA-Public Use
  Company Number: IT-DSJP-DSE-2020-103783

PATIENT

DRUGS (1)
  1. OLPREZIDE [Suspect]
     Active Substance: HYDROCHLOROTHIAZIDE\OLMESARTAN MEDOXOMIL
     Indication: HYPERTENSION
     Dosage: 20/25 MG, QD
     Route: 048
     Dates: start: 20191224, end: 20191224

REACTIONS (7)
  - Vertigo [Recovering/Resolving]
  - Hypotension [Recovering/Resolving]
  - Pallor [Recovering/Resolving]
  - Loss of consciousness [Recovering/Resolving]
  - Vision blurred [Recovering/Resolving]
  - Hyperhidrosis [Recovering/Resolving]
  - Asthenia [Recovering/Resolving]

NARRATIVE: CASE EVENT DATE: 20191224
